FAERS Safety Report 6519219-9 (Version None)
Quarter: 2009Q4

REPORT INFORMATION
  Report Type: 
  Country: None (occurrence: None)
  Receive Date: 20091228
  Receipt Date: 20091214
  Transmission Date: 20100525
  Serious: Yes (Other)
  Sender: FDA-Public Use
  Company Number: PHHY2009CO32521

PATIENT
  Sex: Male

DRUGS (3)
  1. LIORESAL [Suspect]
     Indication: PAIN
     Dosage: 1 DF, 1 TABLET PER DAY
     Route: 048
     Dates: start: 20090801, end: 20090801
  2. TEGRETOL RETARD [Suspect]
     Indication: TRIGEMINAL NEURALGIA
     Dosage: 2 DF, PER DAY
  3. CARDURA [Concomitant]
     Indication: PROSTATE EXAMINATION ABNORMAL
     Dosage: UNK

REACTIONS (4)
  - ANXIETY [None]
  - INSOMNIA [None]
  - RESTLESSNESS [None]
  - SCREAMING [None]
